FAERS Safety Report 21930429 (Version 1)
Quarter: 2023Q1

REPORT INFORMATION
  Report Type: Spontaneous
  Country: US (occurrence: US)
  Receive Date: 20230131
  Receipt Date: 20230131
  Transmission Date: 20230418
  Serious: No
  Sender: FDA-Public Use
  Company Number: US-BRISTOL-MYERS SQUIBB COMPANY-2023-014581

PATIENT
  Age: 65 Year
  Sex: Female
  Weight: 83.91 kg

DRUGS (3)
  1. SOTYKTU [Suspect]
     Active Substance: DEUCRAVACITINIB
     Indication: Psoriatic arthropathy
     Route: 048
     Dates: start: 20230125
  2. SOTYKTU [Suspect]
     Active Substance: DEUCRAVACITINIB
     Indication: Psoriasis
  3. SOTYKTU [Suspect]
     Active Substance: DEUCRAVACITINIB
     Indication: Eczema

REACTIONS (5)
  - Pyrexia [Unknown]
  - Blister [Unknown]
  - Acne [Unknown]
  - Peripheral swelling [Unknown]
  - Off label use [Unknown]
